FAERS Safety Report 6819564-3 (Version None)
Quarter: 2010Q3

REPORT INFORMATION
  Report Type: 
  Country: None (occurrence: None)
  Receive Date: 20100701
  Receipt Date: 20090526
  Transmission Date: 20110219
  Serious: No
  Sender: FDA-Public Use
  Company Number: US-TEVA-187478USA

PATIENT
  Sex: Female

DRUGS (14)
  1. AZILECT [Suspect]
     Route: 048
     Dates: start: 20090101, end: 20090201
  2. AZILECT [Suspect]
     Dates: start: 20090201
  3. COUGH COLD MEDICINE (NOS) [Concomitant]
  4. MELOXICAM [Concomitant]
     Dosage: OD
     Route: 048
  5. ESCITALOPRAM OXALATE [Concomitant]
     Route: 048
  6. RETINOL [Concomitant]
     Route: 048
  7. ERGOCALCIFEROL [Concomitant]
     Route: 048
  8. TOCOPHEROL CONCENTRATE CAP [Concomitant]
     Route: 048
  9. ASCORBIC ACID [Concomitant]
     Route: 048
  10. MAGNESIUM [Concomitant]
     Route: 048
  11. MECLOZINE [Concomitant]
     Dosage: PRN
     Route: 048
  12. ESOMEPRAZOLE MAGNESIUM [Concomitant]
     Route: 048
  13. ESTROGENS CONJUGATED [Concomitant]
  14. LEVOTHYROXINE SODIUM [Concomitant]
     Route: 048

REACTIONS (1)
  - SWOLLEN TONGUE [None]
